FAERS Safety Report 6908765-1 (Version None)
Quarter: 2010Q3

REPORT INFORMATION
  Report Type: 
  Country: None (occurrence: None)
  Receive Date: 20100805
  Receipt Date: 20100727
  Transmission Date: 20110219
  Serious: Yes (Death, Hospitalization)
  Sender: FDA-Public Use
  Company Number: A0867256A

PATIENT
  Sex: Male

DRUGS (1)
  1. AVANDIA [Suspect]
     Route: 065

REACTIONS (6)
  - ATRIAL FIBRILLATION [None]
  - ATRIAL FLUTTER [None]
  - CARDIAC FAILURE CONGESTIVE [None]
  - CEREBROVASCULAR ACCIDENT [None]
  - CORONARY ARTERY DISEASE [None]
  - PNEUMONIA [None]
